FAERS Safety Report 8988034 (Version 1)
Quarter: 2012Q4

REPORT INFORMATION
  Report Type: 
  Country: BR (occurrence: BR)
  Receive Date: 20121227
  Receipt Date: 20121227
  Transmission Date: 20130627
  Serious: Yes (Life-Threatening, Hospitalization, Other)
  Sender: FDA-Public Use
  Company Number: BR-ASTRAZENECA-2012SE95490

PATIENT
  Age: 58 Year
  Sex: Male
  Weight: 91 kg

DRUGS (6)
  1. NAPHAZOLINE HYDROCHLORIDE\ZINC SULFATE [Suspect]
     Indication: HYPERTENSION
     Route: 048
     Dates: start: 2002, end: 20121218
  2. LISINOPRIL [Suspect]
     Indication: HYPERTENSION
     Route: 048
     Dates: start: 2002, end: 20121218
  3. BRILINTA [Suspect]
     Indication: ANTIPLATELET THERAPY
     Route: 048
     Dates: start: 20121219, end: 20121220
  4. IODINE [Suspect]
     Indication: SCAN WITH CONTRAST
     Route: 065
     Dates: start: 20121218, end: 20121218
  5. SOMALGIN CARDIO [Concomitant]
     Route: 048
     Dates: start: 20121219
  6. DIOVAN [Concomitant]
     Route: 048
     Dates: start: 20121219

REACTIONS (8)
  - Anaphylactic shock [Recovered/Resolved]
  - Malaise [Recovered/Resolved]
  - Coronary artery occlusion [Recovered/Resolved]
  - Cold sweat [Not Recovered/Not Resolved]
  - Petechiae [Not Recovered/Not Resolved]
  - Dyspnoea [Not Recovered/Not Resolved]
  - Nausea [Not Recovered/Not Resolved]
  - Diarrhoea [Not Recovered/Not Resolved]
